FAERS Safety Report 6254460-4 (Version None)
Quarter: 2009Q2

REPORT INFORMATION
  Report Type: 
  Country: None (occurrence: None)
  Receive Date: 20090630
  Receipt Date: 20081216
  Transmission Date: 20091009
  Serious: Yes (Other)
  Sender: FDA-Public Use
  Company Number: US-SEPTODONT-200800242

PATIENT
  Age: 42 Year
  Sex: Female
  Weight: 68 kg

DRUGS (1)
  1. ARTICAINE HYDROCHLORIDE WITH EPINEPHRINE 1:100000 [Suspect]
     Indication: LOCAL ANAESTHESIA
     Dosage: ONE DOUBLE DOSE DENTAL
     Dates: start: 20031209

REACTIONS (1)
  - PARAESTHESIA ORAL [None]
